FAERS Safety Report 21400030 (Version 3)
Quarter: 2022Q4

REPORT INFORMATION
  Report Type: Spontaneous
  Country: UY (occurrence: UY)
  Receive Date: 20221002
  Receipt Date: 20221108
  Transmission Date: 20230113
  Serious: No
  Sender: FDA-Public Use
  Company Number: UY-PFIZER INC-PV202200068123

PATIENT
  Age: 13 Year
  Sex: Male

DRUGS (1)
  1. GENOTROPIN [Suspect]
     Active Substance: SOMATROPIN
     Indication: Growth hormone deficiency
     Dosage: 1 TO 1.4 MG, 7X/WEEK (7 TIMES PER WEEK)
     Dates: start: 20210910

REACTIONS (3)
  - Device mechanical issue [Unknown]
  - Device failure [Unknown]
  - Drug dose omission by device [Unknown]

NARRATIVE: CASE EVENT DATE: 20220920
